FAERS Safety Report 16337492 (Version 2)
Quarter: 2019Q3

REPORT INFORMATION
  Report Type: Spontaneous
  Country: US (occurrence: US)
  Receive Date: 20190521
  Receipt Date: 20190702
  Transmission Date: 20191004
  Serious: Yes (Other)
  Sender: FDA-Public Use
  Company Number: US-ENDO PHARMACEUTICALS INC-2019-104699

PATIENT
  Age: 55 Year
  Sex: Female

DRUGS (1)
  1. PHENOBARBITAL. [Suspect]
     Active Substance: PHENOBARBITAL
     Indication: SEIZURE
     Dosage: 150 MG, DAILY
     Route: 065

REACTIONS (4)
  - Seizure [Not Recovered/Not Resolved]
  - Cough [Unknown]
  - Toxicity to various agents [Unknown]
  - Weight decreased [Unknown]
